FAERS Safety Report 9713994 (Version 1)
Quarter: 2013Q4

REPORT INFORMATION
  Report Type: Spontaneous
  Country: US (occurrence: US)
  Receive Date: 20131126
  Receipt Date: 20131126
  Transmission Date: 20140711
  Serious: No
  Sender: FDA-Public Use
  Company Number: US-GILEAD-2008-0018480

PATIENT
  Sex: Female
  Weight: 79.38 kg

DRUGS (13)
  1. LETAIRIS [Suspect]
     Indication: PULMONARY ARTERIAL HYPERTENSION
     Route: 048
     Dates: start: 20080221
  2. COREG [Concomitant]
  3. AVAPRO [Concomitant]
  4. DEMADEX [Concomitant]
  5. ASPIRIN EC [Concomitant]
  6. PLAVIX [Concomitant]
  7. RANEXA [Concomitant]
  8. TYLENOL E-STRENGTH [Concomitant]
  9. NEURONTIN [Concomitant]
  10. METFORMIN [Concomitant]
  11. JANUVIA [Concomitant]
  12. GLUCOSAMINE [Concomitant]
  13. POTASSIUM CHLORIDE [Concomitant]

REACTIONS (2)
  - Adverse event [None]
  - Drug hypersensitivity [None]
